FAERS Safety Report 22143447 (Version 2)
Quarter: 2023Q1

REPORT INFORMATION
  Report Type: Report from Study
  Country: US (occurrence: US)
  Receive Date: 20230327
  Receipt Date: 20230329
  Transmission Date: 20230418
  Serious: No
  Sender: FDA-Public Use
  Company Number: US-002147023-NVSC2023US067876

PATIENT
  Sex: Male

DRUGS (1)
  1. OMNITROPE [Suspect]
     Active Substance: SOMATROPIN
     Indication: Product used for unknown indication
     Dosage: 2 MG, QD (DAILY 6 DAYS PER WEEK)
     Route: 058

REACTIONS (3)
  - Device issue [Not Recovered/Not Resolved]
  - Drug dose omission by device [Unknown]
  - Injection site pain [Not Recovered/Not Resolved]
